FAERS Safety Report 10583515 (Version 3)
Quarter: 2014Q4

REPORT INFORMATION
  Report Type: Spontaneous
  Country: IT (occurrence: None)
  Receive Date: 20141112
  Receipt Date: 20141210
  Transmission Date: 20150529
  Serious: Yes (Hospitalization, Other)
  Sender: FDA-Public Use
  Company Number: IT-ZYDUS-005357

PATIENT
  Age: 79 Year
  Sex: Female

DRUGS (10)
  1. BISOPROLOL HEMIFUMARATE (BISOPROLOL HEMIFUMARATE) (2.5 MG MILLIGRAM(S)) [Suspect]
     Active Substance: BISOPROLOL
     Indication: ATRIAL FIBRILLATION
     Route: 048
  2. DIAMICRON (DIAMICRON) (30-MG MILLIGRAM(S)) [Suspect]
     Active Substance: GLICLAZIDE
     Indication: DIABETES MELLITUS
     Route: 048
  3. TRITTICO [Suspect]
     Active Substance: TRAZODONE HYDROCHLORIDE
     Indication: COGNITIVE DISORDER
     Route: 048
  4. LANOXIN [Suspect]
     Active Substance: DIGOXIN
     Indication: ATRIAL FIBRILLATION
     Route: 042
     Dates: start: 20141001, end: 20141001
  5. LASIX [Suspect]
     Active Substance: FUROSEMIDE
     Indication: CARDIAC DISORDER
     Route: 048
  6. LEVETIRACETAM (LEVETIRACETAM) 500 MG [Suspect]
     Active Substance: LEVETIRACETAM
     Indication: POST-TRAUMATIC EPILEPSY
     Dosage: 2.00-DOSAGE-1.0DAYS
     Route: 048
  7. RAMIPRIL (RAMIPRIL) (5-MG MILLIGRAM(S)) [Suspect]
     Active Substance: RAMIPRIL
     Indication: HYPERTENSION
     Dosage: ?
     Route: 048
  8. LANSOPRAZOLE (LANSOPRAZOLE) (30-MG MILLIGRAM(S)) [Suspect]
     Active Substance: LANSOPRAZOLE
     Indication: GASTRITIS
     Route: 048
  9. PAROXETINE [Suspect]
     Active Substance: PAROXETINE\PAROXETINE HYDROCHLORIDE
     Indication: ADJUSTMENT DISORDER WITH DEPRESSED MOOD
     Route: 048
  10. LANOXIN [Suspect]
     Active Substance: DIGOXIN
     Indication: CARDIOMYOPATHY
     Route: 048

REACTIONS (24)
  - Cardioactive drug level increased [None]
  - Malnutrition [None]
  - Tricuspid valve incompetence [None]
  - Presyncope [None]
  - Atrial fibrillation [None]
  - Bradyphrenia [None]
  - Medication error [None]
  - Drug interaction [None]
  - Dysphagia [None]
  - Post-traumatic epilepsy [None]
  - Cardiac disorder [None]
  - Overdose [None]
  - Fatigue [None]
  - Malaise [None]
  - Diabetic metabolic decompensation [None]
  - Adjustment disorder [None]
  - Cognitive disorder [None]
  - Carotid arteriosclerosis [None]
  - Petit mal epilepsy [None]
  - Toxicity to various agents [None]
  - Depressed mood [None]
  - Fall [None]
  - Spinal compression fracture [None]
  - False positive investigation result [None]

NARRATIVE: CASE EVENT DATE: 20141001
